FAERS Safety Report 4757225-5 (Version None)
Quarter: 2005Q3

REPORT INFORMATION
  Report Type: 
  Country: None (occurrence: None)
  Receive Date: 20050829
  Receipt Date: 20050816
  Transmission Date: 20060218
  Serious: Yes (Hospitalization)
  Sender: FDA-Public Use
  Company Number: 2005-BP-14147RO

PATIENT
  Age: 68 Year
  Sex: Female

DRUGS (3)
  1. METHOTREXATE [Suspect]
     Indication: RHEUMATOID ARTHRITIS
     Dosage: 7.5 - 10 MG/WEEK
     Dates: start: 19970801, end: 20030501
  2. HYDROXYCHLOROQUINE SULFATE [Suspect]
     Indication: RHEUMATOID ARTHRITIS
     Dosage: 400 MG/DAY
     Dates: start: 19970801
  3. FOLATE (FOLATE SODIUM) [Concomitant]

REACTIONS (2)
  - BICYTOPENIA [None]
  - ERYTHROLEUKAEMIA [None]
